FAERS Safety Report 9007847 (Version 4)
Quarter: 2013Q4

REPORT INFORMATION
  Report Type: Spontaneous
  Country: US (occurrence: US)
  Receive Date: 20130110
  Receipt Date: 20131125
  Transmission Date: 20140711
  Serious: Yes (Hospitalization, Other)
  Sender: FDA-Public Use
  Company Number: US-009507513-1301USA002963

PATIENT
  Sex: Female
  Weight: 72.56 kg

DRUGS (5)
  1. FOSAMAX [Suspect]
     Indication: OSTEOPENIA
     Dosage: 70 MG, UNK
     Route: 048
     Dates: start: 20030509, end: 200804
  2. ALENDRONATE SODIUM [Suspect]
     Indication: OSTEOPENIA
     Dosage: 70 MG, UNK
     Route: 048
     Dates: start: 200805, end: 20111011
  3. VITAMINS (UNSPECIFIED) [Concomitant]
     Dosage: QD
     Dates: start: 1998, end: 2007
  4. CALCIUM (UNSPECIFIED) [Concomitant]
     Dosage: 1200 MG, UNK
     Dates: start: 2003, end: 2011
  5. VITAMIN E [Concomitant]
     Dosage: 1000 MG, UNK
     Dates: start: 1998, end: 2009

REACTIONS (2)
  - Femur fracture [Recovered/Resolved]
  - Blood cholesterol increased [Unknown]
